FAERS Safety Report 19246345 (Version 1)
Quarter: 2021Q2

REPORT INFORMATION
  Report Type: Spontaneous
  Country: US (occurrence: US)
  Receive Date: 20210512
  Receipt Date: 20210512
  Transmission Date: 20210717
  Serious: Yes (Hospitalization)
  Sender: FDA-Public Use
  Company Number: None

PATIENT
  Age: 69 Year
  Sex: Male
  Weight: 68 kg

DRUGS (1)
  1. CABAZITAXEL [Suspect]
     Active Substance: CABAZITAXEL
     Dates: end: 20210416

REACTIONS (7)
  - Weight decreased [None]
  - Pain [None]
  - Asthenia [None]
  - Vomiting [None]
  - Nausea [None]
  - Failure to thrive [None]
  - Walking aid user [None]

NARRATIVE: CASE EVENT DATE: 20210510
